FAERS Safety Report 9276322 (Version 1)
Quarter: 2013Q2

REPORT INFORMATION
  Report Type: Spontaneous
  Country: US (occurrence: US)
  Receive Date: 20130507
  Receipt Date: 20130507
  Transmission Date: 20140414
  Serious: Yes (Other)
  Sender: FDA-Public Use
  Company Number: US-BAYER-2013-055084

PATIENT
  Age: 46 Year
  Sex: Female

DRUGS (2)
  1. YAZ [Suspect]
     Indication: MENSTRUAL CYCLE MANAGEMENT
     Dosage: UNK
     Dates: start: 2007, end: 201009
  2. BEYAZ [Suspect]
     Dosage: UNK
     Dates: start: 201009, end: 20120313

REACTIONS (4)
  - Deep vein thrombosis [None]
  - Pain in extremity [None]
  - Stress [None]
  - Swelling [None]
